FAERS Safety Report 16038293 (Version 1)
Quarter: 2019Q1

REPORT INFORMATION
  Report Type: Report from Study
  Country: BR (occurrence: BR)
  Receive Date: 20190305
  Receipt Date: 20190305
  Transmission Date: 20190418
  Serious: Yes (Hospitalization)
  Sender: FDA-Public Use
  Company Number: BR-ROCHE-609172

PATIENT
  Age: 48 Year
  Sex: Female
  Weight: 73 kg

DRUGS (6)
  1. PERTUZUMAB. [Suspect]
     Active Substance: PERTUZUMAB
     Indication: HER-2 POSITIVE BREAST CANCER
     Dosage: DOSE BLINDED,FORM INFUSION, LAST DOSE PRIOR TO SAE 04 DEC 2008, FREQUENCY: 21/21
     Route: 042
     Dates: start: 20081023, end: 20090112
  2. TRASTUZUMAB. [Suspect]
     Active Substance: TRASTUZUMAB
     Indication: HER-2 POSITIVE BREAST CANCER
     Dosage: DOSAGE FORM: INFUSION, FREQUENCY: 21/21.PERMANENTLY DISCONTINUED.
     Route: 042
     Dates: start: 20081023, end: 20090112
  3. TRASTUZUMAB. [Suspect]
     Active Substance: TRASTUZUMAB
     Dosage: DOSAGE FORM: INFUSION, FREQUENCY: 21/21.PERMANENTLY DISCONTINUED, LAST DOSE PRIOR TO SAE 04 DEC 08
     Route: 042
  4. DOCETAXEL. [Suspect]
     Active Substance: DOCETAXEL
     Indication: BREAST CANCER METASTATIC
     Dosage: DOSAGE FORM: INFUSION, FREQUENCY: 21/21.PERMANENTLY DISCONTINUED LAST DOSE PRIOR TO SAE 04 DEC 08
     Route: 042
     Dates: start: 20081023, end: 20090112
  5. OMEPRAZOLE. [Concomitant]
     Active Substance: OMEPRAZOLE
     Route: 065
     Dates: start: 20090119, end: 20090123
  6. PERTUZUMAB. [Suspect]
     Active Substance: PERTUZUMAB
     Dosage: DOSE BLINDED,FORM INFUSION, LAST DOSE PRIOR TO SAE 04 DEC 2008, FREQUENCY: 21/21
     Route: 042

REACTIONS (1)
  - Left ventricular dysfunction [Recovering/Resolving]

NARRATIVE: CASE EVENT DATE: 20081217
